FAERS Safety Report 14063020 (Version 4)
Quarter: 2018Q2

REPORT INFORMATION
  Report Type: Spontaneous
  Country: FR (occurrence: FR)
  Receive Date: 20171009
  Receipt Date: 20180509
  Transmission Date: 20180711
  Serious: Yes (Life-Threatening, Other)
  Sender: FDA-Public Use
  Company Number: FR-EMD SERONO-8188488

PATIENT
  Age: 28 Year
  Sex: Female
  Weight: 75 kg

DRUGS (10)
  1. GONAL-F [Suspect]
     Active Substance: FOLLITROPIN
     Indication: CONTROLLED OVARIAN STIMULATION
     Route: 058
     Dates: start: 20150811, end: 20170825
  2. AERIUS                             /01009701/ [Concomitant]
     Active Substance: EBASTINE
     Indication: RHINITIS ALLERGIC
     Route: 048
  3. CLAIRYG [Suspect]
     Active Substance: HUMAN IMMUNOGLOBULIN G
     Indication: LICHEN MYXOEDEMATOSUS
     Dosage: SOLUTION POUR PERFUSION , ONE VIAL OF CLAIRYG 10 GRAM PLUS ONE VIAL OF CLAIRYG 20 GRAM, INTRAVENOUS
     Route: 041
  4. DECAPEPTYL                         /00486501/ [Suspect]
     Active Substance: GONADORELIN
     Indication: CONTROLLED OVARIAN STIMULATION
     Dosage: POWDER AND SOLVENT FOR SOLUTION FOR INJECTION
     Route: 058
     Dates: start: 20170812, end: 20170814
  5. NERISONE [Concomitant]
     Active Substance: DIFLUCORTOLONE VALERATE
     Indication: LICHEN MYXOEDEMATOSUS
  6. GONAL-F [Suspect]
     Active Substance: FOLLITROPIN
     Route: 058
     Dates: start: 20170807, end: 20170815
  7. ORGALUTRAN [Suspect]
     Active Substance: GANIRELIX ACETATE
     Indication: CONTROLLED OVARIAN STIMULATION
     Dosage: 0.25 MG/0.5 ML
     Route: 058
     Dates: start: 20170812, end: 20170814
  8. ANTIGONE [Suspect]
     Active Substance: DESOGESTREL
     Indication: CONTRACEPTION
     Route: 048
     Dates: end: 201707
  9. DECAPEPTYL                         /00486501/ [Suspect]
     Active Substance: GONADORELIN
     Dosage: THERAPY START DATE: 16 AUG 2017
     Route: 058
     Dates: end: 20170816
  10. PLAQUENIL                          /00072602/ [Concomitant]
     Active Substance: HYDROXYCHLOROQUINE DIPHOSPHATE
     Indication: LICHEN MYXOEDEMATOSUS

REACTIONS (8)
  - Off label use [Unknown]
  - Intracardiac thrombus [Recovered/Resolved]
  - Nasopharyngitis [Unknown]
  - Product use in unapproved indication [Unknown]
  - Incorrect dose administered [Unknown]
  - Pulmonary embolism [Recovered/Resolved]
  - Escherichia infection [Unknown]
  - Dyspnoea exertional [Recovered/Resolved]

NARRATIVE: CASE EVENT DATE: 2017
